FAERS Safety Report 5656646-6 (Version None)
Quarter: 2008Q1

REPORT INFORMATION
  Report Type: 
  Country: None (occurrence: None)
  Receive Date: 20080310
  Receipt Date: 20080204
  Transmission Date: 20080703
  Serious: No
  Sender: FDA-Public Use
  Company Number: US-BAYER-200813511NA

PATIENT
  Age: 88 Year
  Sex: Female

DRUGS (2)
  1. ULTRAVIST 370 [Suspect]
     Indication: COMPUTERISED TOMOGRAM
     Route: 042
     Dates: start: 20080131, end: 20080131
  2. GASTROGRAFIN [Concomitant]
     Dates: start: 20070131

REACTIONS (2)
  - DYSPNOEA [None]
  - SNEEZING [None]
